FAERS Safety Report 11678874 (Version 7)
Quarter: 2016Q2

REPORT INFORMATION
  Report Type: Spontaneous
  Country: CA (occurrence: CA)
  Receive Date: 20151028
  Receipt Date: 20160419
  Transmission Date: 20160815
  Serious: Yes (Hospitalization, Other)
  Sender: FDA-Public Use
  Company Number: CA-CONCORDIA PHARMACEUTICALS INC.-CO-PL-CA-2015-328

PATIENT
  Sex: Male

DRUGS (4)
  1. SULFASALAZINE. [Suspect]
     Active Substance: SULFASALAZINE
     Indication: PRODUCT USED FOR UNKNOWN INDICATION
     Route: 048
  2. ARAVA [Suspect]
     Active Substance: LEFLUNOMIDE
     Indication: PRODUCT USED FOR UNKNOWN INDICATION
     Route: 065
  3. METHOTREXATE [Suspect]
     Active Substance: METHOTREXATE
     Indication: PRODUCT USED FOR UNKNOWN INDICATION
     Route: 058
  4. PLAQUENIL [Suspect]
     Active Substance: HYDROXYCHLOROQUINE SULFATE
     Indication: PRODUCT USED FOR UNKNOWN INDICATION
     Route: 065

REACTIONS (17)
  - Bursitis [Unknown]
  - Fall [Unknown]
  - Nausea [Unknown]
  - Drug ineffective [Unknown]
  - Nerve injury [Unknown]
  - Intervertebral disc operation [Unknown]
  - Tracheostomy [Unknown]
  - Hypoaesthesia [Unknown]
  - Movement disorder [Unknown]
  - Dry mouth [Unknown]
  - Carpal tunnel syndrome [Unknown]
  - Pain [Unknown]
  - Staphylococcal infection [Unknown]
  - Malaise [Unknown]
  - Diarrhoea [Unknown]
  - Balance disorder [Unknown]
  - Neck deformity [Unknown]

NARRATIVE: CASE EVENT DATE: 2010
